FAERS Safety Report 7278905-6 (Version None)
Quarter: 2010Q4

REPORT INFORMATION
  Report Type: 
  Country: None (occurrence: None)
  Receive Date: 20101206
  Receipt Date: 20100827
  Transmission Date: 20110411
  Serious: Yes (Other)
  Sender: FDA-Public Use
  Company Number: 2010SP046609

PATIENT
  Age: 40 Year
  Sex: Female

DRUGS (2)
  1. SAPHRIS [Suspect]
     Indication: MANIA
     Dosage: 5 MG; SL; 10 MG; BID; SL
     Route: 060
  2. GEODON [Suspect]

REACTIONS (1)
  - TARDIVE DYSKINESIA [None]
